FAERS Safety Report 9026090 (Version 6)
Quarter: 2013Q4

REPORT INFORMATION
  Report Type: Spontaneous
  Country: US (occurrence: US)
  Receive Date: 20130122
  Receipt Date: 20131009
  Transmission Date: 20140711
  Serious: Yes (Hospitalization, Disabling, Other)
  Sender: FDA-Public Use
  Company Number: US-009507513-1301USA009734

PATIENT
  Sex: Female
  Weight: 65.76 kg

DRUGS (4)
  1. FOSAMAX [Suspect]
     Indication: OSTEOPOROSIS
     Dosage: 75 MG, UNK
     Route: 048
     Dates: start: 2001, end: 200603
  2. FOSAMAX [Suspect]
     Dosage: UNK, QW
     Route: 048
  3. FOSAMAX [Suspect]
     Dosage: UNK, QD
     Route: 048
  4. CALCIUM (UNSPECIFIED) [Concomitant]

REACTIONS (27)
  - Femur fracture [Recovered/Resolved]
  - Intramedullary rod insertion [Unknown]
  - Cataract operation [Unknown]
  - Fall [Not Recovered/Not Resolved]
  - Femur fracture [Recovering/Resolving]
  - Femur fracture [Unknown]
  - Vitamin D deficiency [Unknown]
  - Calcium deficiency [Unknown]
  - Incorrect dose administered [Unknown]
  - Osteoarthritis [Recovering/Resolving]
  - Bursitis [Unknown]
  - Intervertebral disc degeneration [Unknown]
  - Spinal disorder [Unknown]
  - Bursitis [Recovered/Resolved]
  - Anaemia [Unknown]
  - Hypokalaemia [Unknown]
  - Osteopenia [Unknown]
  - Amenorrhoea [Unknown]
  - Exostosis [Unknown]
  - Breast cyst excision [Unknown]
  - Breast operation [Unknown]
  - Labile hypertension [Unknown]
  - Protein urine present [Unknown]
  - Road traffic accident [Unknown]
  - Chest injury [Unknown]
  - Localised infection [Unknown]
  - Bone pain [Recovered/Resolved]
